FAERS Safety Report 17476312 (Version 1)
Quarter: 2020Q1

REPORT INFORMATION
  Report Type: Report from Study
  Country: CA (occurrence: CA)
  Receive Date: 20200228
  Receipt Date: 20200228
  Transmission Date: 20200409
  Serious: Yes (Other)
  Sender: FDA-Public Use
  Company Number: CA-JNJFOC-20190718250

PATIENT
  Sex: Female

DRUGS (1)
  1. STELARA [Suspect]
     Active Substance: USTEKINUMAB
     Indication: CROHN^S DISEASE
     Route: 058
     Dates: start: 20190319

REACTIONS (15)
  - Dysuria [Unknown]
  - Headache [Unknown]
  - Drug ineffective [Unknown]
  - Lymphadenopathy [Unknown]
  - Crohn^s disease [Not Recovered/Not Resolved]
  - Paraesthesia [Unknown]
  - Myalgia [Unknown]
  - Cough [Unknown]
  - Arthralgia [Unknown]
  - Rash [Unknown]
  - Vertigo [Unknown]
  - Vulvovaginal pruritus [Unknown]
  - Pruritus [Unknown]
  - Confusional state [Not Recovered/Not Resolved]
  - Rhinorrhoea [Unknown]

NARRATIVE: CASE EVENT DATE: 2019
